FAERS Safety Report 25321401 (Version 1)
Quarter: 2025Q2

REPORT INFORMATION
  Report Type: Spontaneous
  Country: PT (occurrence: PT)
  Receive Date: 20250516
  Receipt Date: 20250516
  Transmission Date: 20250717
  Serious: Yes (Other)
  Sender: TAKEDA
  Company Number: PT-TAKEDA-2025TUS045263

PATIENT

DRUGS (1)
  1. LIVTENCITY [Suspect]
     Active Substance: MARIBAVIR
     Indication: Product used for unknown indication
     Dosage: 400 MILLIGRAM, BID

REACTIONS (2)
  - Cytomegalovirus infection reactivation [Unknown]
  - Therapy non-responder [Unknown]
